FAERS Safety Report 7907620-8 (Version None)
Quarter: 2011Q4

REPORT INFORMATION
  Report Type: 
  Country: None (occurrence: None)
  Receive Date: 20111110
  Receipt Date: 20111105
  Transmission Date: 20120403
  Serious: Yes (Hospitalization, Other)
  Sender: FDA-Public Use
  Company Number: PHHY2011MX098201

PATIENT
  Sex: Female

DRUGS (4)
  1. DIOVAN [Suspect]
     Indication: HYPERTENSION
     Dosage: 1 DF (80 MG VALSARTAN), DAILY
     Dates: start: 20100601
  2. ENALAPRIL MALEATE [Concomitant]
  3. BI-EUGLUCON [Concomitant]
  4. BEDOYECTA [Concomitant]

REACTIONS (1)
  - CERVIX CARCINOMA [None]
